FAERS Safety Report 5083267-9 (Version None)
Quarter: 2006Q3

REPORT INFORMATION
  Report Type: 
  Country: None (occurrence: None)
  Receive Date: 20060818
  Receipt Date: 20060809
  Transmission Date: 20061208
  Serious: Yes (Hospitalization)
  Sender: FDA-Public Use
  Company Number: PHBS2006BR12175

PATIENT
  Age: 80 Year
  Sex: Male

DRUGS (3)
  1. HYDERGINE [Suspect]
     Dosage: UNK, QD
     Route: 048
  2. CAPTOPRIL [Concomitant]
  3. SUSTRATE [Concomitant]

REACTIONS (4)
  - CARDIAC DISCOMFORT [None]
  - DIZZINESS [None]
  - FEELING ABNORMAL [None]
  - RETCHING [None]
